FAERS Safety Report 4391867-4 (Version None)
Quarter: 2004Q3

REPORT INFORMATION
  Report Type: 
  Country: None (occurrence: None)
  Receive Date: 20040707
  Receipt Date: 20040630
  Transmission Date: 20050211
  Serious: Yes (Life-Threatening, Hospitalization)
  Sender: FDA-Public Use
  Company Number: GB-MERCK-0407GBR00018

PATIENT
  Age: 64 Year
  Sex: Male

DRUGS (4)
  1. FELODIPINE [Concomitant]
     Indication: HYPERTENSION
     Route: 048
  2. INDAPAMIDE [Concomitant]
     Indication: HYPERTENSION
     Route: 048
  3. IRBESARTAN [Concomitant]
     Indication: HYPERTENSION
     Route: 048
  4. VIOXX [Suspect]
     Indication: ARTHRITIS
     Route: 048
     Dates: start: 20040417, end: 20040615

REACTIONS (3)
  - GASTRIC ULCER [None]
  - GASTRITIS [None]
  - REFLUX OESOPHAGITIS [None]
